FAERS Safety Report 7987449-5 (Version None)
Quarter: 2011Q4

REPORT INFORMATION
  Report Type: 
  Country: None (occurrence: None)
  Receive Date: 20111216
  Receipt Date: 20111028
  Transmission Date: 20120403
  Serious: No
  Sender: FDA-Public Use
  Company Number: US-BRISTOL-MYERS SQUIBB COMPANY-16203846

PATIENT
  Age: 46 Year
  Sex: Female
  Weight: 107 kg

DRUGS (6)
  1. WELLBUTRIN [Concomitant]
  2. ABILIFY [Suspect]
     Indication: BIPOLAR DISORDER
     Dosage: 15MG TWO PILLS
  3. LAMICTAL [Concomitant]
  4. CLONAZEPAM [Concomitant]
  5. PROVIGIL [Concomitant]
  6. PANTOPRAZOLE [Concomitant]

REACTIONS (1)
  - CHEST DISCOMFORT [None]
